FAERS Safety Report 4968738-5 (Version None)
Quarter: 2006Q2

REPORT INFORMATION
  Report Type: 
  Country: None (occurrence: None)
  Receive Date: 20060405
  Receipt Date: 20060329
  Transmission Date: 20061013
  Serious: No
  Sender: FDA-Public Use
  Company Number: 2005-0008844

PATIENT
  Age: 69 Year
  Sex: Male

DRUGS (11)
  1. HEPSERA [Suspect]
     Indication: HEPATITIS B
     Dosage: 10 MG, 1 IN 1 D, ORAL
     Route: 048
     Dates: start: 20031113
  2. ZEFIX (LAMIVUDINE) (100 MG, TABLET) [Suspect]
     Indication: HEPATIC CIRRHOSIS
     Dosage: 100 MG, ORAL
     Route: 048
     Dates: start: 20011023
  3. ZEFIX (LAMIVUDINE) (100 MG, TABLET) [Suspect]
     Indication: HEPATITIS B
     Dosage: 100 MG, ORAL
     Route: 048
     Dates: start: 20011023
  4. WARFARIN SODIUM [Concomitant]
  5. ANPLAG (SARPOGRELATE HYDROCHLORIDE) [Concomitant]
  6. SELBEX (TEPRENONE) [Concomitant]
  7. DIART (AZOSEMIDE) [Concomitant]
  8. DIGOXIN [Concomitant]
  9. FAMOTIDINE [Concomitant]
  10. ALDACTONE [Concomitant]
  11. SLOW-K [Concomitant]

REACTIONS (1)
  - HEPATIC NEOPLASM MALIGNANT [None]
